FAERS Safety Report 9943780 (Version 2)
Quarter: 2014Q1

REPORT INFORMATION
  Report Type: Report from Study
  Country: US (occurrence: US)
  Receive Date: 20140303
  Receipt Date: 20140303
  Transmission Date: 20141002
  Serious: Yes (Hospitalization)
  Sender: FDA-Public Use
  Company Number: US-ABBVIE-13P-163-1038845-00

PATIENT
  Age: 55 Year
  Sex: Female

DRUGS (4)
  1. HUMIRA PEN [Suspect]
     Indication: POLYARTHRITIS
     Route: 058
     Dates: start: 20130109
  2. HUMIRA PEN [Suspect]
     Indication: RHEUMATOID ARTHRITIS
  3. HYDROXYCHLOROQUINE [Concomitant]
     Indication: PRODUCT USED FOR UNKNOWN INDICATION
  4. METHOTREXATE [Concomitant]
     Indication: RHEUMATOID ARTHRITIS

REACTIONS (6)
  - Dehydration [Recovered/Resolved]
  - Nausea [Recovered/Resolved]
  - Influenza like illness [Recovering/Resolving]
  - Chills [Unknown]
  - Vomiting [Unknown]
  - Nasopharyngitis [Unknown]
